FAERS Safety Report 16701394 (Version 1)
Quarter: 2019Q3

REPORT INFORMATION
  Report Type: Spontaneous
  Country: FR (occurrence: FR)
  Receive Date: 20190814
  Receipt Date: 20190814
  Transmission Date: 20191004
  Serious: Yes (Life-Threatening, Hospitalization)
  Sender: FDA-Public Use
  Company Number: FR-ACCORD-151475

PATIENT
  Age: 75 Year
  Sex: Female
  Weight: 46 kg

DRUGS (4)
  1. METHYLPREDNISOLONE. [Concomitant]
     Active Substance: METHYLPREDNISOLONE
     Route: 048
  2. CARBOPLATIN. [Suspect]
     Active Substance: CARBOPLATIN
     Indication: BLADDER TRANSITIONAL CELL CARCINOMA
     Route: 041
     Dates: start: 20190719, end: 20190719
  3. GEMCITABINE. [Concomitant]
     Active Substance: GEMCITABINE
     Indication: TRANSITIONAL CELL CARCINOMA
     Route: 041
     Dates: start: 20190719, end: 20190719
  4. ONDANSETRON [Concomitant]
     Active Substance: ONDANSETRON
     Route: 041

REACTIONS (2)
  - Acute pulmonary oedema [Recovered/Resolved]
  - Off label use [Unknown]

NARRATIVE: CASE EVENT DATE: 20190719
